FAERS Safety Report 25746493 (Version 2)
Quarter: 2025Q3

REPORT INFORMATION
  Report Type: Spontaneous
  Country: US (occurrence: US)
  Receive Date: 20250901
  Receipt Date: 20250909
  Transmission Date: 20251020
  Serious: No
  Sender: BAUSCH AND LOMB
  Company Number: US-BAUSCHBL-2025BNL015137

PATIENT
  Sex: Female

DRUGS (2)
  1. LATANOPROST [Suspect]
     Active Substance: LATANOPROST
     Indication: Product used for unknown indication
     Route: 065
  2. LATANOPROST [Suspect]
     Active Substance: LATANOPROST
     Route: 065
     Dates: start: 20250826

REACTIONS (4)
  - Foreign body sensation in eyes [Unknown]
  - Photophobia [Unknown]
  - Eye pain [Unknown]
  - Product complaint [Unknown]
